FAERS Safety Report 7245416-3 (Version None)
Quarter: 2011Q1

REPORT INFORMATION
  Report Type: 
  Country: None (occurrence: None)
  Receive Date: 20110126
  Receipt Date: 20110120
  Transmission Date: 20110831
  Serious: Yes (Other)
  Sender: FDA-Public Use
  Company Number: US-ALEXION-A201100042

PATIENT
  Sex: Female

DRUGS (3)
  1. SOLIRIS [Suspect]
     Dosage: 900 MG, Q2W
     Route: 042
  2. PROTONIX [Concomitant]
     Dosage: UNK
     Route: 048
  3. SOLIRIS [Suspect]
     Indication: PAROXYSMAL NOCTURNAL HAEMOGLOBINURIA
     Dosage: 600 MG, QW
     Route: 042
     Dates: start: 20081008, end: 20081101

REACTIONS (3)
  - DEPRESSION [None]
  - ANXIETY [None]
  - LEUKAEMIA [None]
